FAERS Safety Report 17544525 (Version 1)
Quarter: 2020Q1

REPORT INFORMATION
  Report Type: Spontaneous
  Country: CA (occurrence: CA)
  Receive Date: 20200316
  Receipt Date: 20200316
  Transmission Date: 20200409
  Serious: Yes (Hospitalization)
  Sender: FDA-Public Use
  Company Number: CA-PFIZER INC-2020109248

PATIENT
  Age: 10 Year
  Sex: Male
  Weight: 28 kg

DRUGS (1)
  1. DEFEROXAMINE MESILATE [Suspect]
     Active Substance: DEFEROXAMINE MESYLATE
     Indication: IRON OVERLOAD
     Dosage: 1400.0 MG, 1X/DAY
     Route: 058

REACTIONS (5)
  - Infusion site erythema [Recovered/Resolved]
  - Staphylococcal infection [Recovered/Resolved]
  - Infusion site cellulitis [Recovered/Resolved]
  - Infusion site swelling [Recovered/Resolved]
  - Cellulitis staphylococcal [Recovered/Resolved]
